FAERS Safety Report 24845986 (Version 1)
Quarter: 2025Q1

REPORT INFORMATION
  Report Type: Other
  Country: FR (occurrence: FR)
  Receive Date: 20250115
  Receipt Date: 20250115
  Transmission Date: 20250409
  Serious: Yes (Congenital Anomaly)
  Sender: HARMONY BIOSCIENCES
  Company Number: FR-HARMONY BIOSCIENCES-2025HMY00009

PATIENT

DRUGS (1)
  1. PITOLISANT [Suspect]
     Active Substance: PITOLISANT
     Indication: Narcolepsy
     Dosage: 17.8 MG, 1X/DAY
     Route: 065

REACTIONS (3)
  - Oligohydramnios [Not Recovered/Not Resolved]
  - Renal dysplasia [Not Recovered/Not Resolved]
  - Paternal exposure before pregnancy [Recovered/Resolved]

NARRATIVE: CASE EVENT DATE: 20240326
